FAERS Safety Report 6883549-1 (Version None)
Quarter: 2010Q3

REPORT INFORMATION
  Report Type: 
  Country: None (occurrence: None)
  Receive Date: 20100729
  Receipt Date: 20100726
  Transmission Date: 20110219
  Serious: Yes (Death, Other)
  Sender: FDA-Public Use
  Company Number: US-BAYER-201028998NA

PATIENT
  Sex: Female

DRUGS (1)
  1. AVELOX [Suspect]
     Indication: SINUSITIS
     Dosage: TOTAL DAILY DOSE: 400 MG  UNIT DOSE: 400 MG
     Route: 048

REACTIONS (5)
  - ACUTE HEPATIC FAILURE [None]
  - BLISTER [None]
  - EYE SWELLING [None]
  - STEVENS-JOHNSON SYNDROME [None]
  - YELLOW SKIN [None]
